FAERS Safety Report 6949791-6 (Version None)
Quarter: 2010Q3

REPORT INFORMATION
  Report Type: 
  Country: None (occurrence: None)
  Receive Date: 20100828
  Receipt Date: 20100111
  Transmission Date: 20110219
  Serious: No
  Sender: FDA-Public Use
  Company Number: US-ABBOTT-10P-163-0619186-00

PATIENT
  Sex: Male

DRUGS (3)
  1. NIASPAN [Suspect]
     Indication: HIGH DENSITY LIPOPROTEIN DECREASED
     Dosage: DAILY WITH ASPIRIN
     Route: 048
  2. NIASPAN [Suspect]
     Indication: CARDIAC DISORDER
  3. ASPIRIN [Concomitant]
     Indication: PRODUCT USED FOR UNKNOWN INDICATION
     Dosage: TAKEN WITH NIASPAN COATED

REACTIONS (3)
  - FLUSHING [None]
  - SKIN BURNING SENSATION [None]
  - VIRAL INFECTION [None]
